FAERS Safety Report 8054100-8 (Version None)
Quarter: 2012Q1

REPORT INFORMATION
  Report Type: 
  Country: None (occurrence: None)
  Receive Date: 20120118
  Receipt Date: 20120111
  Transmission Date: 20120608
  Serious: Yes (Other)
  Sender: FDA-Public Use
  Company Number: PHHY2012ES002779

PATIENT
  Age: 51 Year
  Sex: Female

DRUGS (2)
  1. LEVOFLOXACIN [Suspect]
     Indication: PLEURAL EFFUSION
     Dosage: 500 MG, Q12H
     Route: 048
  2. CEFTRIAXONE [Concomitant]

REACTIONS (3)
  - HEPATITIS CHOLESTATIC [None]
  - HAEMANGIOMA OF LIVER [None]
  - RENAL INJURY [None]
